FAERS Safety Report 8808033 (Version 2)
Quarter: 2014Q3

REPORT INFORMATION
  Report Type: Report from Study
  Country: US (occurrence: US)
  Receive Date: 20120925
  Receipt Date: 20140814
  Transmission Date: 20150326
  Serious: Yes (Death, Hospitalization, Other)
  Sender: FDA-Public Use
  Company Number: US-ROCHE-1103463

PATIENT
  Sex: Female
  Weight: 68 kg

DRUGS (6)
  1. AVASTIN [Suspect]
     Active Substance: BEVACIZUMAB
     Indication: METASTASIS
  2. CARBOPLATIN. [Concomitant]
     Active Substance: CARBOPLATIN
  3. XELODA [Suspect]
     Active Substance: CAPECITABINE
     Indication: PRODUCT USED FOR UNKNOWN INDICATION
     Route: 048
  4. AVASTIN [Suspect]
     Active Substance: BEVACIZUMAB
     Indication: BREAST CANCER FEMALE
     Route: 042
  5. AVASTIN [Suspect]
     Active Substance: BEVACIZUMAB
     Indication: BREAST CANCER METASTATIC
  6. TAXOL [Concomitant]
     Active Substance: PACLITAXEL

REACTIONS (5)
  - Death [Fatal]
  - Liver disorder [Unknown]
  - Haemorrhage [Unknown]
  - Pain [Unknown]
  - Off label use [Unknown]
